FAERS Safety Report 6723473-8 (Version None)
Quarter: 2010Q2

REPORT INFORMATION
  Report Type: 
  Country: None (occurrence: None)
  Receive Date: 20100513
  Receipt Date: 20100505
  Transmission Date: 20101027
  Serious: Yes (Hospitalization, Other)
  Sender: FDA-Public Use
  Company Number: FR-BRISTOL-MYERS SQUIBB COMPANY-15101256

PATIENT
  Age: 39 Year
  Sex: Female

DRUGS (2)
  1. GLUCOPHAGE [Suspect]
     Route: 048
     Dates: start: 20100422, end: 20100427
  2. AMLOR [Suspect]
     Route: 048
     Dates: start: 20100416, end: 20100427

REACTIONS (2)
  - HEPATITIS [None]
  - PULMONARY SARCOIDOSIS [None]
